FAERS Safety Report 5400423-8 (Version None)
Quarter: 2007Q3

REPORT INFORMATION
  Report Type: 
  Country: None (occurrence: None)
  Receive Date: 20070730
  Receipt Date: 20070725
  Transmission Date: 20080115
  Serious: Yes (Hospitalization)
  Sender: FDA-Public Use
  Company Number: B0480789A

PATIENT
  Age: 69 Year
  Sex: Female

DRUGS (3)
  1. AMOXICILLIN [Suspect]
     Indication: TOOTH ABSCESS
     Route: 048
     Dates: start: 20070605, end: 20070608
  2. ALDOMET [Concomitant]
     Route: 048
  3. ALDACTAZINE [Concomitant]
     Route: 048

REACTIONS (14)
  - ABNORMAL SENSATION IN EYE [None]
  - ACUTE GENERALISED EXANTHEMATOUS PUSTULOSIS [None]
  - DERMATITIS [None]
  - EOSINOPHIL COUNT INCREASED [None]
  - LACRIMATION INCREASED [None]
  - LEUKOCYTOSIS [None]
  - MYELOCYTOSIS [None]
  - OCULAR HYPERAEMIA [None]
  - OEDEMA PERIPHERAL [None]
  - RASH MACULO-PAPULAR [None]
  - RASH PUSTULAR [None]
  - SKIN EXFOLIATION [None]
  - SKIN WARM [None]
  - TOXIC SKIN ERUPTION [None]
